FAERS Safety Report 15917885 (Version 2)
Quarter: 2019Q1

REPORT INFORMATION
  Report Type: Spontaneous
  Country: US (occurrence: US)
  Receive Date: 20190205
  Receipt Date: 20190208
  Transmission Date: 20190417
  Serious: Yes (Other)
  Sender: FDA-Public Use
  Company Number: US-PFIZER INC-2019048806

PATIENT
  Sex: Male

DRUGS (1)
  1. BICILLIN L-A [Suspect]
     Active Substance: PENICILLIN G BENZATHINE
     Dosage: UNK

REACTIONS (5)
  - Pain in extremity [Unknown]
  - Pyrexia [Not Recovered/Not Resolved]
  - Thinking abnormal [Unknown]
  - Delirium [Unknown]
  - Headache [Unknown]
